FAERS Safety Report 10258220 (Version 1)
Quarter: 2014Q2

REPORT INFORMATION
  Report Type: Spontaneous
  Country: IT (occurrence: IT)
  Receive Date: 20140625
  Receipt Date: 20140625
  Transmission Date: 20141212
  Serious: Yes (Other)
  Sender: FDA-Public Use
  Company Number: IT-MERCK-1406ITA011273

PATIENT
  Age: 59 Year
  Sex: Female
  Weight: 70 kg

DRUGS (1)
  1. XELEVIA [Suspect]
     Indication: DIABETES MELLITUS
     Dosage: 100 MG DAILY
     Route: 048
     Dates: start: 20140528, end: 20140601

REACTIONS (4)
  - Insomnia [Recovering/Resolving]
  - Headache [Recovering/Resolving]
  - Pruritus [Recovering/Resolving]
  - Urticaria [Recovering/Resolving]
